FAERS Safety Report 6342881-0 (Version None)
Quarter: 2009Q3

REPORT INFORMATION
  Report Type: 
  Country: None (occurrence: None)
  Receive Date: 20090908
  Receipt Date: 20090901
  Transmission Date: 20100115
  Serious: Yes (Hospitalization)
  Sender: FDA-Public Use
  Company Number: DE-BRISTOL-MYERS SQUIBB COMPANY-14761837

PATIENT
  Age: 63 Year
  Sex: Female
  Weight: 50 kg

DRUGS (3)
  1. CETUXIMAB [Suspect]
     Indication: NON-SMALL CELL LUNG CANCER
     Dosage: INTERRUPTED ON 15APR09, 440DAYS;RESTART ON 30APR09 WITH 380MG;2MG/ML
     Route: 042
     Dates: start: 20090130
  2. CARBOPLATIN [Suspect]
     Indication: NON-SMALL CELL LUNG CANCER
     Dosage: RECENT INF-2APR09, 427DAYS
     Route: 042
     Dates: start: 20080130, end: 20090402
  3. GEMCITABINE [Suspect]
     Indication: NON-SMALL CELL LUNG CANCER
     Dosage: RECENT INF-9APR09, 434DAYS
     Route: 042
     Dates: start: 20080130, end: 20090409

REACTIONS (2)
  - PNEUMONIA [None]
  - PNEUMOTHORAX [None]
